FAERS Safety Report 25489849 (Version 2)
Quarter: 2025Q3

REPORT INFORMATION
  Report Type: Spontaneous
  Country: JP (occurrence: JP)
  Receive Date: 20250627
  Receipt Date: 20250714
  Transmission Date: 20251021
  Serious: Yes (Death, Hospitalization, Other)
  Sender: MERCK SHARP & DOHME LLC
  Company Number: JP-009507513-2299773

PATIENT
  Age: 8 Decade
  Sex: Male

DRUGS (3)
  1. KEYTRUDA [Suspect]
     Active Substance: PEMBROLIZUMAB
     Indication: Renal cell carcinoma
     Dosage: 200 MG, Q3W
     Route: 041
     Dates: start: 20250515, end: 20250605
  2. LENVATINIB [Suspect]
     Active Substance: LENVATINIB
     Indication: Renal cell carcinoma
     Dosage: 20 MG ONCE DAILY
     Route: 048
     Dates: start: 20250515, end: 2025
  3. LENVATINIB [Suspect]
     Active Substance: LENVATINIB
     Indication: Renal cell carcinoma
     Dosage: 10 MG ONCE DAILY
     Route: 048
     Dates: start: 2025, end: 20250618

REACTIONS (5)
  - Malignant neoplasm progression [Fatal]
  - Hypothyroidism [Unknown]
  - Hypoglycaemia [Not Recovered/Not Resolved]
  - Computerised tomogram pancreas abnormal [Unknown]
  - Hypocalcaemia [Unknown]

NARRATIVE: CASE EVENT DATE: 20250101
